FAERS Safety Report 7375079-8 (Version None)
Quarter: 2011Q1

REPORT INFORMATION
  Report Type: 
  Country: None (occurrence: None)
  Receive Date: 20110315
  Receipt Date: 20110303
  Transmission Date: 20110831
  Serious: Yes (Other)
  Sender: FDA-Public Use
  Company Number: 2011MA002163

PATIENT
  Age: 9 Year
  Sex: Female

DRUGS (1)
  1. CETIRIZINE HYDROCHLORIDE SYRUP, 1MG/ML (AMALLC) (CETIRIZINE) [Suspect]
     Indication: URTICARIA CHRONIC
     Dosage: 20 MG; TID; PO
     Route: 048

REACTIONS (1)
  - OVERDOSE [None]
